FAERS Safety Report 9514907 (Version 1)
Quarter: 2013Q1

REPORT INFORMATION
  Report Type: Spontaneous
  Country: US (occurrence: None)
  Receive Date: 20130305
  Receipt Date: 20130305
  Transmission Date: 20140127
  Serious: Yes (Hospitalization)
  Sender: FDA-Public Use
  Company Number: 163-21880-12112973

PATIENT
  Age: 84 Year
  Sex: Male
  Weight: 85.05 kg

DRUGS (10)
  1. REVLIMID [Suspect]
     Indication: PLASMA CELL MYELOMA
     Route: 048
     Dates: start: 201205, end: 201207
  2. DECADRON (DEXAMETHASONE) (UNNOWN) [Concomitant]
  3. LIPITOR (ATORVASTATIN) (UNKNOWN) [Concomitant]
  4. SYNTHROID (LEVOTHYROXIDE SODIUM) (UNKNOWN) [Concomitant]
  5. NASONEX (MOMETASONE FUROATE) (UNKNOWN) [Concomitant]
  6. GABAPENTIN (GABAPENTIN) (UNKNOWN) (GABAPENTIN) [Concomitant]
  7. LORAZEPAM (LORAZEPAM) (UNKNOWN) [Concomitant]
  8. TYLENOL #3 (PARACETAMOL) (UNKNOWN) [Concomitant]
  9. PRILOSEC (OMEPRAZOLE)  (UNKNOWN) [Concomitant]
  10. ASPIRIN (ACETYLSALICYLIC ACID) (UNKNOWN) (ACETYLSALICYLIC ACID) [Concomitant]

REACTIONS (1)
  - Pulmonary embolism [None]
